FAERS Safety Report 19464889 (Version 2)
Quarter: 2021Q2

REPORT INFORMATION
  Report Type: Spontaneous
  Country: US (occurrence: US)
  Receive Date: 20210626
  Receipt Date: 20210626
  Transmission Date: 20210717
  Serious: No
  Sender: FDA-Public Use
  Company Number: US-ABBVIE-21K-163-3918969-00

PATIENT
  Sex: Male

DRUGS (6)
  1. HUMIRA [Suspect]
     Active Substance: ADALIMUMAB
     Indication: CROHN^S DISEASE
  2. COVID?19 VACCINE [Concomitant]
     Dosage: MODERNA
     Route: 030
     Dates: start: 202103, end: 202103
  3. SKYRIZI [Suspect]
     Active Substance: RISANKIZUMAB-RZAA
     Indication: PRODUCT USED FOR UNKNOWN INDICATION
     Route: 058
     Dates: start: 202104, end: 202104
  4. SKYRIZI [Suspect]
     Active Substance: RISANKIZUMAB-RZAA
     Route: 058
     Dates: start: 202105, end: 202105
  5. HUMIRA [Suspect]
     Active Substance: ADALIMUMAB
     Indication: PSORIASIS
     Route: 058
  6. COVID?19 VACCINE [Concomitant]
     Indication: COVID-19 IMMUNISATION
     Dosage: MODERNA
     Route: 030
     Dates: start: 202103, end: 202103

REACTIONS (2)
  - Psoriasis [Recovered/Resolved]
  - Psoriasis [Not Recovered/Not Resolved]

NARRATIVE: CASE EVENT DATE: 2021
